FAERS Safety Report 23257072 (Version 1)
Quarter: 2023Q4

REPORT INFORMATION
  Report Type: Spontaneous
  Country: CN (occurrence: CN)
  Receive Date: 20231204
  Receipt Date: 20231204
  Transmission Date: 20240110
  Serious: Yes (Other)
  Sender: FDA-Public Use
  Company Number: CN-BAUSCH-BL-2023-017574

PATIENT
  Age: 12 Year
  Sex: Female

DRUGS (13)
  1. TRETINOIN [Suspect]
     Active Substance: TRETINOIN
     Indication: Acute promyelocytic leukaemia
     Dosage: COMBINED THERAPY WITH ARSENIC TRIOXIDE, AND IDARUBICIN
     Route: 065
  2. TRETINOIN [Suspect]
     Active Substance: TRETINOIN
     Dosage: CONSOLIDATION CHEMOTHERAPY WITH CYTARABINE
     Route: 065
  3. TRETINOIN [Suspect]
     Active Substance: TRETINOIN
     Dosage: COMBINED THERAPY WITH DAUNORUBICIN, AND CYTARABINE
     Route: 065
  4. IDARUBICIN [Suspect]
     Active Substance: IDARUBICIN
     Indication: Acute promyelocytic leukaemia
     Dosage: COMBINATION WITH ATRA
     Route: 065
  5. IDARUBICIN [Suspect]
     Active Substance: IDARUBICIN
     Dosage: COMBINED THERAPY, INCLUDING ATRA, ARSENIC TRIOXIDE, AND IDARUBICIN
     Route: 065
  6. IDARUBICIN [Suspect]
     Active Substance: IDARUBICIN
     Dosage: COMBINED CHEMOTHERAPY INCLUDING DECITABINE, HOMOHARRINGTONINE AND CYTARABINE.
     Route: 065
  7. ARSENIC TRIOXIDE [Suspect]
     Active Substance: ARSENIC TRIOXIDE
     Indication: Acute promyelocytic leukaemia
     Route: 065
  8. CYTARABINE [Suspect]
     Active Substance: CYTARABINE
     Indication: Acute promyelocytic leukaemia
     Dosage: CONSOLIDATION CHEMOTHERAPY
     Route: 065
  9. CYTARABINE [Suspect]
     Active Substance: CYTARABINE
     Dosage: COMBINED THERAPY, INCLUDING ATRA, DAUNORUBICIN
     Route: 065
  10. CYTARABINE [Suspect]
     Active Substance: CYTARABINE
     Dosage: COMBINED CHEMOTHERAPY INCLUDING DECITABINE, HOMOHARRINGTONINE AND IDARUBICIN
     Route: 065
  11. DAUNORUBICIN [Suspect]
     Active Substance: DAUNORUBICIN
     Indication: Acute promyelocytic leukaemia
     Route: 065
  12. DECITABINE [Suspect]
     Active Substance: DECITABINE
     Indication: Acute promyelocytic leukaemia
     Route: 065
  13. OMACETAXINE MEPESUCCINATE [Suspect]
     Active Substance: OMACETAXINE MEPESUCCINATE
     Indication: Acute promyelocytic leukaemia
     Route: 065

REACTIONS (1)
  - Multiple-drug resistance [Unknown]
